FAERS Safety Report 5261073-X (Version None)
Quarter: 2007Q1

REPORT INFORMATION
  Report Type: 
  Country: None (occurrence: None)
  Receive Date: 20070309
  Receipt Date: 20070228
  Transmission Date: 20070707
  Serious: Yes (Death, Other)
  Sender: FDA-Public Use
  Company Number: US-PFIZER INC-2005151244

PATIENT
  Sex: Female

DRUGS (6)
  1. NEURONTIN [Suspect]
     Indication: NEUROPATHY PERIPHERAL
     Dates: start: 19970504, end: 20011010
  2. HYDROCODONE [Concomitant]
  3. DIAZEPAM [Concomitant]
     Dates: start: 20030328
  4. TIZANIDINE HCL [Concomitant]
     Dates: start: 20030814
  5. METHYLPREDNISOLONE 16MG TAB [Concomitant]
     Dates: start: 20030809
  6. SALSALATE [Concomitant]
     Dates: start: 20030825

REACTIONS (3)
  - COMPLETED SUICIDE [None]
  - DRUG INEFFECTIVE [None]
  - SUICIDE ATTEMPT [None]
